FAERS Safety Report 25220906 (Version 1)
Quarter: 2025Q2

REPORT INFORMATION
  Report Type: Report from Study
  Country: US (occurrence: US)
  Receive Date: 20250421
  Receipt Date: 20250421
  Transmission Date: 20250717
  Serious: Yes (Death, Hospitalization)
  Sender: PFIZER
  Company Number: US-PFIZER INC-PV202400040260

PATIENT
  Age: 85 Year
  Sex: Male

DRUGS (12)
  1. VYNDAMAX [Suspect]
     Active Substance: TAFAMIDIS
     Dosage: 61 MG, 1X/DAY
     Route: 048
     Dates: start: 20201209
  2. VYNDAMAX [Suspect]
     Active Substance: TAFAMIDIS
     Dosage: 61 MG, 1X/DAY
     Route: 048
  3. AMIODARONE [Concomitant]
     Active Substance: AMIODARONE
  4. BUMETANIDE [Concomitant]
     Active Substance: BUMETANIDE
  5. DONEPEZIL [Concomitant]
     Active Substance: DONEPEZIL
  6. FERROUS GLUCONATE [Concomitant]
     Active Substance: FERROUS GLUCONATE
  7. ACETAMINOPHEN\HYDROCODONE [Concomitant]
     Active Substance: ACETAMINOPHEN\HYDROCODONE
  8. LINZESS [Concomitant]
     Active Substance: LINACLOTIDE
  9. METHIMAZOLE [Concomitant]
     Active Substance: METHIMAZOLE
  10. METOLAZONE [Concomitant]
     Active Substance: METOLAZONE
  11. SERTRALINE [Concomitant]
     Active Substance: SERTRALINE HYDROCHLORIDE
  12. SIMVASTATIN [Concomitant]
     Active Substance: SIMVASTATIN

REACTIONS (10)
  - Death [Fatal]
  - Cardiac disorder [Not Recovered/Not Resolved]
  - Heart rate irregular [Unknown]
  - Fluid retention [Unknown]
  - Diarrhoea [Unknown]
  - Peripheral swelling [Unknown]
  - Dyspnoea [Unknown]
  - Dizziness postural [Not Recovered/Not Resolved]
  - Fatigue [Not Recovered/Not Resolved]
  - Blood pressure fluctuation [Unknown]

NARRATIVE: CASE EVENT DATE: 20250401
